FAERS Safety Report 20534333 (Version 1)
Quarter: 2022Q1

REPORT INFORMATION
  Report Type: Spontaneous
  Country: JP (occurrence: JP)
  Receive Date: 20220302
  Receipt Date: 20220302
  Transmission Date: 20220423
  Serious: Yes (Other)
  Sender: FDA-Public Use
  Company Number: JP-SUN PHARMACEUTICAL INDUSTRIES LTD-2022R1-327307

PATIENT
  Age: 47 Year
  Sex: Male

DRUGS (8)
  1. ACETAMINOPHEN [Suspect]
     Active Substance: ACETAMINOPHEN
     Indication: Pyrexia
     Dosage: UNK
     Route: 065
  2. ACETAMINOPHEN [Suspect]
     Active Substance: ACETAMINOPHEN
     Indication: Malaise
  3. CLARITHROMYCIN [Suspect]
     Active Substance: CLARITHROMYCIN
     Indication: Pyrexia
     Dosage: UNK
     Route: 065
  4. CLARITHROMYCIN [Suspect]
     Active Substance: CLARITHROMYCIN
     Indication: Malaise
  5. CARBOCYSTEINE [Suspect]
     Active Substance: CARBOCYSTEINE
     Indication: Pyrexia
     Dosage: UNK
     Route: 065
  6. CARBOCYSTEINE [Suspect]
     Active Substance: CARBOCYSTEINE
     Indication: Malaise
  7. LYSOZYME HYDROCHLORIDE [Suspect]
     Active Substance: LYSOZYME HYDROCHLORIDE
     Indication: Pyrexia
     Dosage: UNK
     Route: 065
  8. LYSOZYME HYDROCHLORIDE [Suspect]
     Active Substance: LYSOZYME HYDROCHLORIDE
     Indication: Malaise

REACTIONS (2)
  - Drug reaction with eosinophilia and systemic symptoms [Recovered/Resolved]
  - Tubulointerstitial nephritis [Recovered/Resolved]
